FAERS Safety Report 10471032 (Version 2)
Quarter: 2015Q1

REPORT INFORMATION
  Report Type: Spontaneous
  Country: US (occurrence: None)
  Receive Date: 20140917
  Receipt Date: 20150319
  Transmission Date: 20150720
  Serious: No
  Sender: FDA-Public Use
  Company Number: 2014CT000120

PATIENT
  Age: 39 Year
  Sex: Female

DRUGS (2)
  1. KORLYM [Suspect]
     Active Substance: MIFEPRISTONE
     Indication: PITUITARY-DEPENDENT CUSHING^S SYNDROME
     Route: 048
     Dates: start: 20140719
  2. GLIPIZIDE. [Concomitant]
     Active Substance: GLIPIZIDE

REACTIONS (11)
  - Oedema peripheral [None]
  - Blood glucose decreased [None]
  - Carbon dioxide decreased [None]
  - Blood potassium decreased [None]
  - Total cholesterol/HDL ratio increased [None]
  - Blood chloride increased [None]
  - Glycosylated haemoglobin increased [None]
  - Blood potassium increased [None]
  - Blood glucose increased [None]
  - Renal impairment [None]
  - Blood triglycerides increased [None]

NARRATIVE: CASE EVENT DATE: 201407
